FAERS Safety Report 23161645 (Version 2)
Quarter: 2023Q4

REPORT INFORMATION
  Report Type: Spontaneous
  Country: US (occurrence: US)
  Receive Date: 20231108
  Receipt Date: 20231120
  Transmission Date: 20240110
  Serious: No
  Sender: FDA-Public Use
  Company Number: US-BEIGENE-BGN-2023-012904

PATIENT

DRUGS (1)
  1. BRUKINSA [Suspect]
     Active Substance: ZANUBRUTINIB
     Indication: Waldenstrom^s macroglobulinaemia
     Dosage: 320 MILLIGRAM, QD
     Route: 048
     Dates: start: 20230912, end: 202310

REACTIONS (3)
  - Aphonia [Not Recovered/Not Resolved]
  - Sinusitis [Recovered/Resolved]
  - Blood immunoglobulin M decreased [Unknown]
